FAERS Safety Report 13861315 (Version 2)
Quarter: 2017Q3

REPORT INFORMATION
  Report Type: Report from Study
  Country: CA (occurrence: CA)
  Receive Date: 20170811
  Receipt Date: 20170925
  Transmission Date: 20171127
  Serious: Yes (Other)
  Sender: FDA-Public Use
  Company Number: CA-JNJFOC-20170809298

PATIENT
  Sex: Female

DRUGS (1)
  1. REMICADE [Suspect]
     Active Substance: INFLIXIMAB
     Indication: CROHN^S DISEASE
     Route: 042

REACTIONS (6)
  - Malaise [Unknown]
  - Asthenia [Unknown]
  - Skin cancer [Unknown]
  - Decreased appetite [Unknown]
  - Dizziness [Unknown]
  - Frequent bowel movements [Unknown]
